FAERS Safety Report 7973811-3 (Version None)
Quarter: 2011Q4

REPORT INFORMATION
  Report Type: 
  Country: None (occurrence: None)
  Receive Date: 20111213
  Receipt Date: 20111130
  Transmission Date: 20120403
  Serious: Yes (Hospitalization)
  Sender: FDA-Public Use
  Company Number: JP-ELI_LILLY_AND_COMPANY-JP201111000360

PATIENT
  Sex: Male
  Weight: 63 kg

DRUGS (3)
  1. PAXIL [Concomitant]
     Dosage: UNK
     Route: 048
     Dates: start: 20110429, end: 20110429
  2. CYMBALTA [Suspect]
     Indication: DEPRESSION
     Dosage: UNK UNK, QD
     Route: 048
     Dates: start: 20110429, end: 20110429
  3. PAXIL [Concomitant]
     Indication: DEPRESSION
     Dosage: UNK
     Route: 048
     Dates: start: 20100812

REACTIONS (3)
  - OVERDOSE [None]
  - RENAL DISORDER [None]
  - DEHYDRATION [None]
